FAERS Safety Report 9851181 (Version 1)
Quarter: 2014Q1

REPORT INFORMATION
  Report Type: Spontaneous
  Country: US (occurrence: US)
  Receive Date: 20140128
  Receipt Date: 20140128
  Transmission Date: 20141002
  Serious: No
  Sender: FDA-Public Use
  Company Number: US-SANOFI-AVENTIS-2013SA093383

PATIENT
  Age: 75 Year
  Sex: Female

DRUGS (1)
  1. LASIX [Suspect]
     Route: 065

REACTIONS (5)
  - Fatigue [Unknown]
  - Thirst [Unknown]
  - Headache [Unknown]
  - Drug hypersensitivity [Unknown]
  - Dehydration [Unknown]
